FAERS Safety Report 19204833 (Version 1)
Quarter: 2021Q2

REPORT INFORMATION
  Report Type: Spontaneous
  Country: US (occurrence: US)
  Receive Date: 20210430
  Receipt Date: 20210430
  Transmission Date: 20210717
  Serious: Yes (Life-Threatening, Hospitalization)
  Sender: FDA-Public Use
  Company Number: None

PATIENT
  Age: 65 Year
  Sex: Male
  Weight: 72 kg

DRUGS (2)
  1. XIAFLEX [Suspect]
     Active Substance: COLLAGENASE CLOSTRIDIUM HISTOLYTICUM
     Indication: DUPUYTREN^S CONTRACTURE
     Dosage: ?          OTHER FREQUENCY:TWO INJECTIONS;?
     Route: 003
     Dates: start: 20190813
  2. LIDOCAINE INJECTION [Concomitant]
     Active Substance: LIDOCAINE
     Dates: start: 20190813, end: 20210413

REACTIONS (4)
  - Peripheral swelling [None]
  - Lymphadenopathy [None]
  - Ecchymosis [None]
  - Acute coronary syndrome [None]

NARRATIVE: CASE EVENT DATE: 20190822
